FAERS Safety Report 9192033 (Version 1)
Quarter: 2013Q1

REPORT INFORMATION
  Report Type: Spontaneous
  Country: US (occurrence: None)
  Receive Date: 20120703
  Receipt Date: 20120703
  Transmission Date: 20140127
  Serious: Yes (Other)
  Sender: FDA-Public Use
  Company Number: PHEH2012US009126

PATIENT
  Age: 43 Year
  Sex: Female

DRUGS (2)
  1. GILENYA (FTY) CAPSULE, 0.5 MG [Suspect]
     Indication: MULTIPLE SCLEROSIS
     Route: 048
     Dates: start: 20120413
  2. COREG [Suspect]
     Indication: BLOOD PRESSURE

REACTIONS (7)
  - Bradycardia [None]
  - Oropharyngeal pain [None]
  - Drug interaction [None]
  - Malaise [None]
  - Diarrhoea [None]
  - Back pain [None]
  - Headache [None]
